FAERS Safety Report 5483311-0 (Version None)
Quarter: 2007Q4

REPORT INFORMATION
  Report Type: 
  Country: None (occurrence: None)
  Receive Date: 20071012
  Receipt Date: 20071001
  Transmission Date: 20080405
  Serious: Yes (Other)
  Sender: FDA-Public Use
  Company Number: PHBS2007NZ16518

PATIENT
  Age: 41 Year
  Sex: Female

DRUGS (3)
  1. CLOZARIL [Suspect]
     Dosage: UNK, UNK
     Dates: start: 20020501, end: 20070926
  2. CLOZARIL [Suspect]
     Dosage: UNK, UNK
     Dates: start: 20071001
  3. QUETIAPINE FUMARATE [Suspect]
     Dosage: 300 MG/DAY
     Dates: start: 20070927, end: 20071001

REACTIONS (6)
  - CRYING [None]
  - DELUSIONAL DISORDER, UNSPECIFIED TYPE [None]
  - DRUG DISPENSING ERROR [None]
  - EMOTIONAL DISTRESS [None]
  - FATIGUE [None]
  - TEARFULNESS [None]
